FAERS Safety Report 15136114 (Version 1)
Quarter: 2018Q3

REPORT INFORMATION
  Report Type: Spontaneous
  Country: IT (occurrence: IT)
  Receive Date: 20180712
  Receipt Date: 20180712
  Transmission Date: 20181010
  Serious: Yes (Other)
  Sender: FDA-Public Use
  Company Number: IT-PFIZER INC-2018275851

PATIENT
  Age: 67 Year

DRUGS (7)
  1. MERREM [Concomitant]
     Active Substance: MEROPENEM
  2. CUBICIN [Concomitant]
     Active Substance: DAPTOMYCIN
  3. NORVASC [Suspect]
     Active Substance: AMLODIPINE BESYLATE
     Indication: HYPERTENSION
     Dosage: 1 DF, 1X/DAY
     Dates: start: 20180316
  4. CATAPRESAN /00171102/ [Suspect]
     Active Substance: CLONIDINE HYDROCHLORIDE
     Indication: HYPERTENSION
     Route: 030
     Dates: start: 20180319
  5. PLAUNAZIDE [Suspect]
     Active Substance: HYDROCHLOROTHIAZIDE\OLMESARTAN MEDOXOMIL
     Indication: HYPERTENSION
     Dosage: 1 DF, 1X/DAY
     Route: 048
     Dates: start: 20180320
  6. PREFOLIC [Concomitant]
     Active Substance: LEUCOVORIN CALCIUM
  7. RIFADIN [Concomitant]
     Active Substance: RIFAMPIN

REACTIONS (1)
  - Hypertensive crisis [Recovering/Resolving]

NARRATIVE: CASE EVENT DATE: 20180320
